FAERS Safety Report 18443650 (Version 1)
Quarter: 2020Q4

REPORT INFORMATION
  Report Type: Spontaneous
  Country: GB (occurrence: GB)
  Receive Date: 20201030
  Receipt Date: 20201030
  Transmission Date: 20210114
  Serious: Yes (Other)
  Sender: FDA-Public Use
  Company Number: GB-TEVA-2020-GB-1841855

PATIENT
  Age: 67 Year
  Sex: Female
  Weight: 74 kg

DRUGS (3)
  1. ADCAL-D3 [Concomitant]
     Active Substance: CALCIUM CARBONATE\CHOLECALCIFEROL
  2. ATORVASTATIN CALCIUM. [Suspect]
     Active Substance: ATORVASTATIN CALCIUM
     Indication: BLOOD CHOLESTEROL INCREASED
     Route: 048
     Dates: start: 20200917, end: 20200922
  3. IBANDRONIC ACID. [Concomitant]
     Active Substance: IBANDRONIC ACID

REACTIONS (13)
  - Neck pain [Recovering/Resolving]
  - Arthralgia [Recovered/Resolved with Sequelae]
  - Hypoaesthesia [Recovering/Resolving]
  - Vision blurred [Recovering/Resolving]
  - Myalgia [Recovered/Resolved]
  - Chest pain [Recovered/Resolved with Sequelae]
  - Headache [Recovering/Resolving]
  - Muscular weakness [Recovered/Resolved with Sequelae]
  - Nightmare [Recovered/Resolved]
  - Back pain [Recovered/Resolved with Sequelae]
  - Insomnia [Recovered/Resolved]
  - Dizziness [Recovering/Resolving]
  - Fatigue [Recovered/Resolved with Sequelae]

NARRATIVE: CASE EVENT DATE: 20200917
